FAERS Safety Report 16069444 (Version 2)
Quarter: 2019Q3

REPORT INFORMATION
  Report Type: Spontaneous
  Country: US (occurrence: US)
  Receive Date: 20190313
  Receipt Date: 20190801
  Transmission Date: 20191004
  Serious: No
  Sender: FDA-Public Use
  Company Number: US-SA-2019SA064759

PATIENT
  Sex: Female

DRUGS (1)
  1. LANTUS SOLOSTAR [Suspect]
     Active Substance: INSULIN GLARGINE
     Dosage: 50 U, QD

REACTIONS (7)
  - Tendon discomfort [Unknown]
  - Tremor [Unknown]
  - Fall [Unknown]
  - Gait disturbance [Unknown]
  - Memory impairment [Unknown]
  - Contusion [Unknown]
  - Nerve injury [Unknown]
